FAERS Safety Report 13698764 (Version 3)
Quarter: 2019Q2

REPORT INFORMATION
  Report Type: Report from Study
  Country: FR (occurrence: FR)
  Receive Date: 20170628
  Receipt Date: 20190617
  Transmission Date: 20190711
  Serious: Yes (Death, Other)
  Sender: FDA-Public Use
  Company Number: FR-ASTRAZENECA-2017SE64523

PATIENT
  Age: 21770 Day
  Sex: Female

DRUGS (15)
  1. AVASTIN [Suspect]
     Active Substance: BEVACIZUMAB
     Indication: OVARIAN CANCER
     Dosage: 15 MG/KG, D1, Q3W, FOR A TOTAL DURATION OF 15 MONTHS / 22 CYCLES
     Route: 042
     Dates: start: 20160428, end: 20170406
  2. OMEPRAZOLE. [Concomitant]
     Active Substance: OMEPRAZOLE
  3. CLARADOL CAFEINE [Concomitant]
     Active Substance: ACETAMINOPHEN\CAFFEINE
  4. ALPRAZOLAM. [Concomitant]
     Active Substance: ALPRAZOLAM
  5. LOPERAMIDE [Concomitant]
     Active Substance: LOPERAMIDE
  6. OLAPARIB. [Suspect]
     Active Substance: OLAPARIB
     Indication: OVARIAN CANCER
     Route: 048
     Dates: start: 20160428, end: 20170510
  7. LACTULOSE. [Concomitant]
     Active Substance: LACTULOSE
  8. PANTOPRAZOLE [Concomitant]
     Active Substance: PANTOPRAZOLE
  9. KARDEGIC [Concomitant]
     Active Substance: ASPIRIN DL-LYSINE
  10. PRIMPERAN [Concomitant]
     Active Substance: METOCLOPRAMIDE HYDROCHLORIDE
  11. DOLIPRANE [Concomitant]
     Active Substance: ACETAMINOPHEN
  12. BROMAZEPAM [Concomitant]
     Active Substance: BROMAZEPAM
  13. BI-PROFENID [Concomitant]
     Active Substance: KETOPROFEN
  14. DIOSMECTITE [Concomitant]
     Active Substance: MONTMORILLONITE
  15. TAZOCILINE [Concomitant]

REACTIONS (2)
  - Acute myeloid leukaemia [Fatal]
  - Myelodysplastic syndrome [Recovered/Resolved with Sequelae]

NARRATIVE: CASE EVENT DATE: 20170509
